FAERS Safety Report 14965588 (Version 2)
Quarter: 2018Q2

REPORT INFORMATION
  Report Type: Other
  Country: IT (occurrence: IT)
  Receive Date: 20180602
  Receipt Date: 20180614
  Transmission Date: 20180711
  Serious: Yes (Other)
  Sender: FDA-Public Use
  Company Number: IT-MACLEODS PHARMACEUTICALS US LTD-MAC2018014137

PATIENT

DRUGS (2)
  1. LEVOFLOXACIN 500MG TABLET [Suspect]
     Active Substance: LEVOFLOXACIN
     Indication: INFECTION
     Dosage: 500 MILLIGRAM, TOTAL
     Route: 048
     Dates: start: 20170115, end: 20170115
  2. NIMESULIDE 100 MG TABLET [Suspect]
     Active Substance: NIMESULIDE
     Indication: PAIN
     Dosage: 100 MILLIGRAM, TOTAL
     Route: 048
     Dates: start: 20170115, end: 20170115

REACTIONS (3)
  - Throat tightness [Recovering/Resolving]
  - Face oedema [Recovering/Resolving]
  - Oesophageal stenosis [Recovering/Resolving]

NARRATIVE: CASE EVENT DATE: 20170115
